FAERS Safety Report 7638111-X (Version None)
Quarter: 2011Q3

REPORT INFORMATION
  Report Type: 
  Country: None (occurrence: None)
  Receive Date: 20110727
  Receipt Date: 20110722
  Transmission Date: 20111222
  Serious: Yes (Other)
  Sender: FDA-Public Use
  Company Number: US-B.I. PHARMACEUTICALS,INC./RIDGEFIELD-2011-BP-18351BP

PATIENT
  Age: 74 Year
  Sex: Female

DRUGS (1)
  1. PRADAXA [Suspect]
     Dates: start: 20110516, end: 20110616

REACTIONS (6)
  - PULMONARY HYPERTENSION [None]
  - RIGHT ATRIAL DILATATION [None]
  - DILATATION VENTRICULAR [None]
  - WEIGHT INCREASED [None]
  - OEDEMA [None]
  - FATIGUE [None]
